FAERS Safety Report 10171422 (Version 1)
Quarter: 2014Q2

REPORT INFORMATION
  Report Type: Report from Study
  Country: CA (occurrence: None)
  Receive Date: 20140512
  Receipt Date: 20140512
  Transmission Date: 20141212
  Serious: Yes (Hospitalization)
  Sender: FDA-Public Use
  Company Number: CA-015642

PATIENT
  Age: 67 Year
  Sex: Male

DRUGS (6)
  1. FIRMAGON (FIRMAGON) [Suspect]
     Indication: PROSTATE CANCER
     Route: 058
     Dates: start: 20120601
  2. ASA [Concomitant]
  3. PREDNISONE [Concomitant]
  4. ANTIEMETICS AND ANTINAUSEANTS [Concomitant]
  5. METOPROLOL [Concomitant]
  6. SERUM LIPID REDUCING AGENTS [Concomitant]

REACTIONS (2)
  - Device related infection [None]
  - Nausea [None]
